FAERS Safety Report 8568146-4 (Version None)
Quarter: 2012Q3

REPORT INFORMATION
  Report Type: 
  Country: None (occurrence: None)
  Receive Date: 20120803
  Receipt Date: 20120712
  Transmission Date: 20120928
  Serious: No
  Sender: FDA-Public Use
  Company Number: US-ABBOTT-12P-163-0955298-00

PATIENT
  Sex: Male
  Weight: 76.272 kg

DRUGS (4)
  1. VITAMIN D [Concomitant]
     Indication: PRODUCT USED FOR UNKNOWN INDICATION
     Dosage: 1000IU EVERY DAY
     Route: 048
  2. ASPIRIN [Concomitant]
     Indication: PRODUCT USED FOR UNKNOWN INDICATION
     Dosage: 81 MG EVERY DAY
     Route: 048
  3. VITAMIN B-12 [Concomitant]
     Indication: PRODUCT USED FOR UNKNOWN INDICATION
     Dosage: 1000 MCG EVERY DAY
     Route: 048
  4. NIASPAN [Suspect]
     Indication: BLOOD CALCIUM INCREASED
     Dosage: AT BEDTIME
     Route: 048
     Dates: start: 20100101

REACTIONS (8)
  - SLEEP DISORDER [None]
  - CONTUSION [None]
  - PARAESTHESIA [None]
  - PRURITUS [None]
  - HYPERHIDROSIS [None]
  - FLUSHING [None]
  - COUGH [None]
  - FATIGUE [None]
